FAERS Safety Report 18726431 (Version 1)
Quarter: 2021Q1

REPORT INFORMATION
  Report Type: Spontaneous
  Country: US (occurrence: US)
  Receive Date: 20210111
  Receipt Date: 20210111
  Transmission Date: 20210419
  Serious: Yes (Hospitalization)
  Sender: FDA-Public Use
  Company Number: US-MYLANLABS-2021M1000935

PATIENT
  Age: 25 Year
  Sex: Male

DRUGS (15)
  1. VALPROIC ACID. [Suspect]
     Active Substance: VALPROIC ACID
     Indication: CATATONIA
     Route: 065
  2. AMOBARBITAL [Suspect]
     Active Substance: AMOBARBITAL
     Indication: CATATONIA
     Route: 065
  3. HALOPERIDOL. [Concomitant]
     Active Substance: HALOPERIDOL
     Indication: AGITATION
     Dosage: 5 MILLIGRAM GIVEN TWICE
     Route: 065
  4. LORAZEPAM. [Concomitant]
     Active Substance: LORAZEPAM
     Indication: LEUKOENCEPHALOPATHY
     Dosage: UNK
     Route: 065
  5. LORAZEPAM. [Concomitant]
     Active Substance: LORAZEPAM
     Indication: SEDATION
     Dosage: STANDING LORAZEPAM FOR SEDATION
     Route: 065
  6. LURASIDONE [Suspect]
     Active Substance: LURASIDONE
     Indication: CONFUSIONAL STATE
     Route: 065
  7. DANTROLENE. [Concomitant]
     Active Substance: DANTROLENE SODIUM
     Indication: LEUKOENCEPHALOPATHY
     Route: 065
  8. DEXMEDETOMIDINE. [Concomitant]
     Active Substance: DEXMEDETOMIDINE
     Indication: SEDATION
     Route: 065
  9. AMOBARBITAL [Suspect]
     Active Substance: AMOBARBITAL
     Indication: AUTONOMIC NERVOUS SYSTEM IMBALANCE
  10. HALOPERIDOL. [Concomitant]
     Active Substance: HALOPERIDOL
     Indication: RESTLESSNESS
  11. LORAZEPAM. [Concomitant]
     Active Substance: LORAZEPAM
     Indication: CATATONIA
     Dosage: 2 MILLIGRAM
     Route: 042
  12. PROPOFOL. [Concomitant]
     Active Substance: PROPOFOL
     Indication: SEDATION
     Route: 065
  13. VALPROIC ACID. [Suspect]
     Active Substance: VALPROIC ACID
     Indication: AUTONOMIC NERVOUS SYSTEM IMBALANCE
  14. LORAZEPAM. [Concomitant]
     Active Substance: LORAZEPAM
     Dosage: 2 MILLIGRAM, Q4H
     Route: 042
  15. FENTANYL. [Concomitant]
     Active Substance: FENTANYL
     Indication: SEDATION
     Route: 065

REACTIONS (2)
  - Drug ineffective for unapproved indication [Unknown]
  - Off label use [Unknown]
